FAERS Safety Report 5966810-4 (Version None)
Quarter: 2008Q4

REPORT INFORMATION
  Report Type: 
  Country: None (occurrence: None)
  Receive Date: 20081125
  Receipt Date: 20081119
  Transmission Date: 20090506
  Serious: Yes (Hospitalization)
  Sender: FDA-Public Use
  Company Number: US-B.I. PHARMACEUTICALS,INC./RIDGEFIELD-2008-BP-10021BP

PATIENT
  Age: 43 Year
  Sex: Female

DRUGS (5)
  1. MIRAPEX [Suspect]
     Indication: RESTLESS LEGS SYNDROME
     Dosage: 2MG
     Route: 048
     Dates: start: 20050101
  2. DEPAKOTE [Suspect]
     Dosage: 100MG
     Dates: start: 20020605, end: 20080604
  3. KEPPRA [Concomitant]
     Dosage: 1000MG
     Dates: start: 20020605
  4. CLONAZEPAM [Concomitant]
     Dosage: 1MG
     Dates: start: 20020605
  5. ZOLOFT [Concomitant]
     Route: 048
     Dates: start: 20020605

REACTIONS (5)
  - DYSKINESIA [None]
  - EPILEPSY [None]
  - LOSS OF CONSCIOUSNESS [None]
  - MENTAL STATUS CHANGES [None]
  - STATUS EPILEPTICUS [None]
